FAERS Safety Report 23961047 (Version 1)
Quarter: 2024Q2

REPORT INFORMATION
  Report Type: Spontaneous
  Country: US (occurrence: US)
  Receive Date: 20240611
  Receipt Date: 20240611
  Transmission Date: 20240716
  Serious: No
  Sender: FDA-Public Use
  Company Number: US-SA-SAC20240606000278

PATIENT
  Age: 40 Year
  Sex: Male

DRUGS (4)
  1. ALPROLIX [Suspect]
     Active Substance: EFTRENONACOG ALFA
     Indication: Factor IX deficiency
     Dosage: 3200 U (2880-3520), BIW
     Route: 042
     Dates: start: 202307
  2. ALPROLIX [Suspect]
     Active Substance: EFTRENONACOG ALFA
     Indication: Factor IX deficiency
     Dosage: 3200 U (2880-3520), BIW
     Route: 042
     Dates: start: 202307
  3. ALPROLIX [Suspect]
     Active Substance: EFTRENONACOG ALFA
     Dosage: 3200 U (2880-3520), PRN
     Route: 042
     Dates: start: 202307
  4. ALPROLIX [Suspect]
     Active Substance: EFTRENONACOG ALFA
     Dosage: 3200 U (2880-3520), PRN
     Route: 042
     Dates: start: 202307

REACTIONS (2)
  - Haemorrhage [Unknown]
  - Weight increased [Unknown]
